FAERS Safety Report 4405795-9 (Version None)
Quarter: 2004Q3

REPORT INFORMATION
  Report Type: 
  Country: None (occurrence: None)
  Receive Date: 20040723
  Receipt Date: 20031215
  Transmission Date: 20050211
  Serious: No
  Sender: FDA-Public Use
  Company Number: US-GLAXOSMITHKLINE-A0443176A

PATIENT
  Age: 84 Year
  Sex: Female

DRUGS (6)
  1. AVANDIA [Suspect]
     Dosage: 2MG PER DAY
     Route: 048
     Dates: start: 20031212
  2. PREVACID [Concomitant]
  3. FOSAMAX [Concomitant]
  4. FLONASE [Concomitant]
  5. LESCOL [Concomitant]
  6. FUROSEMIDE [Concomitant]

REACTIONS (1)
  - ILL-DEFINED DISORDER [None]
